FAERS Safety Report 11310740 (Version 1)
Quarter: 2015Q3

REPORT INFORMATION
  Report Type: Spontaneous
  Country: US (occurrence: US)
  Receive Date: 20150725
  Receipt Date: 20150725
  Transmission Date: 20151125
  Serious: Yes (Other)
  Sender: FDA-Public Use
  Company Number: US-APOTEX-2015AP007902

PATIENT
  Age: 28 Year
  Sex: Female
  Weight: 70.3 kg

DRUGS (3)
  1. BRETHINE [Concomitant]
     Active Substance: TERBUTALINE SULFATE
     Indication: PRODUCT USED FOR UNKNOWN INDICATION
     Dosage: UNK
     Route: 065
     Dates: start: 19990129
  2. BRETHINE [Concomitant]
     Active Substance: TERBUTALINE SULFATE
     Dosage: UNK
     Dates: start: 199905
  3. PAXIL [Suspect]
     Active Substance: PAROXETINE HYDROCHLORIDE
     Indication: DEPRESSION
     Dosage: 20 MG, QD
     Route: 065

REACTIONS (3)
  - Maternal exposure during pregnancy [Unknown]
  - Premature labour [Unknown]
  - Kidney infection [Unknown]
